FAERS Safety Report 17654604 (Version 1)
Quarter: 2020Q2

REPORT INFORMATION
  Report Type: Spontaneous
  Country: US (occurrence: US)
  Receive Date: 20200409
  Receipt Date: 20200409
  Transmission Date: 20200713
  Serious: No
  Sender: FDA-Public Use
  Company Number: None

PATIENT
  Age: 80 Year
  Sex: Male
  Weight: 68.49 kg

DRUGS (2)
  1. RITUXIMAB (RITUXIMAB 10MG/ML, VIL, 50ML) [Suspect]
     Active Substance: RITUXIMAB
     Indication: LYMPHOPLASMACYTOID LYMPHOMA/IMMUNOCYTOMA
     Route: 042
     Dates: start: 20170831
  2. RITUXIMAB (RITUXIMAB 10MG/ML, VIL, 50ML) [Suspect]
     Active Substance: RITUXIMAB
     Indication: AUTOIMMUNE HAEMOLYTIC ANAEMIA
     Route: 042
     Dates: start: 20170831

REACTIONS (4)
  - Blood alkaline phosphatase increased [None]
  - Blood bilirubin increased [None]
  - Arthralgia [None]
  - Bilirubin conjugated increased [None]

NARRATIVE: CASE EVENT DATE: 20190122
